FAERS Safety Report 4945854-5 (Version None)
Quarter: 2006Q1

REPORT INFORMATION
  Report Type: 
  Country: None (occurrence: None)
  Receive Date: 20060117
  Receipt Date: 20050201
  Transmission Date: 20060701
  Serious: Yes (Hospitalization)
  Sender: FDA-Public Use
  Company Number: A03200500321

PATIENT
  Age: 80 Year
  Sex: Male
  Weight: 86.1834 kg

DRUGS (8)
  1. PLAVIX [Suspect]
     Indication: ANGINA UNSTABLE
     Dosage: 75MG QD ORAL
     Route: 048
     Dates: start: 20030701
  2. PLAVIX [Suspect]
     Indication: CORONARY ARTERY DISEASE
     Dosage: 75MG QD ORAL
     Route: 048
     Dates: start: 20030701
  3. AMLODIPINE BESYLATE [Concomitant]
  4. SIMVASTATIN [Concomitant]
  5. ISOSORBIDE MONONITRATE [Concomitant]
  6. QUINAPRIL HCL [Concomitant]
  7. GLYCERYL TRINITRATE [Concomitant]
  8. PRIMIDONE [Concomitant]

REACTIONS (3)
  - EPISTAXIS [None]
  - POST PROCEDURAL HAEMORRHAGE [None]
  - RECTAL HAEMORRHAGE [None]
